FAERS Safety Report 7526281-3 (Version None)
Quarter: 2011Q2

REPORT INFORMATION
  Report Type: 
  Country: None (occurrence: None)
  Receive Date: 20110606
  Receipt Date: 20110530
  Transmission Date: 20111010
  Serious: Yes (Other)
  Sender: FDA-Public Use
  Company Number: US-PFIZER INC-2011098519

PATIENT
  Sex: Female
  Weight: 48 kg

DRUGS (3)
  1. ESTRING [Suspect]
     Indication: VULVOVAGINAL DRYNESS
     Dosage: 2 MG, UNK
     Route: 067
     Dates: start: 20110404, end: 20110407
  2. LIPITOR [Concomitant]
     Indication: BLOOD CHOLESTEROL INCREASED
     Dosage: UNK
  3. ESTRING [Suspect]
     Indication: MENOPAUSE

REACTIONS (3)
  - BREAST PAIN [None]
  - HAEMORRHAGE [None]
  - MUSCLE SPASMS [None]
